FAERS Safety Report 11578932 (Version 2)
Quarter: 2015Q4

REPORT INFORMATION
  Report Type: Spontaneous
  Country: US (occurrence: US)
  Receive Date: 20150930
  Receipt Date: 20151027
  Transmission Date: 20160304
  Serious: Yes (Death)
  Sender: FDA-Public Use
  Company Number: US-BAUSCH-BL-2014-010601

PATIENT
  Age: 57 Year
  Sex: Male

DRUGS (2)
  1. XENAZINE [Suspect]
     Active Substance: TETRABENAZINE
     Indication: HUNTINGTON^S DISEASE
     Dosage: TAKING SIX XENAZINE TABLETS DAILY INSTEAD OF THE PRESCRIBED EIGHT XENAZINE TABLETS
     Route: 048
  2. XENAZINE [Suspect]
     Active Substance: TETRABENAZINE
     Dosage: 1-2 TABS FOUR TIMES A DAY
     Route: 048
     Dates: start: 20150810

REACTIONS (3)
  - Prescribed overdose [Not Recovered/Not Resolved]
  - Death [Fatal]
  - Intentional product use issue [Not Recovered/Not Resolved]

NARRATIVE: CASE EVENT DATE: 20150918
